FAERS Safety Report 5465784-2 (Version None)
Quarter: 2007Q3

REPORT INFORMATION
  Report Type: 
  Country: None (occurrence: None)
  Receive Date: 20070924
  Receipt Date: 20070912
  Transmission Date: 20080115
  Serious: Yes (Hospitalization)
  Sender: FDA-Public Use
  Company Number: B0487948A

PATIENT
  Age: 69 Year
  Sex: Male

DRUGS (10)
  1. ZOFRAN [Suspect]
     Dosage: 8MG TWICE PER DAY
     Route: 048
  2. PAROXETINE [Suspect]
     Dosage: 20MG PER DAY
     Route: 048
  3. ELOXATIN [Suspect]
     Dosage: 130MG CYCLIC
     Route: 042
     Dates: start: 20070401, end: 20070725
  4. FLUOROURACIL [Suspect]
     Dosage: 1.8G CYCLIC
     Route: 042
     Dates: start: 20070401, end: 20070807
  5. LEDERFOLINE [Suspect]
     Dosage: 590MG CYCLIC
     Route: 042
     Dates: start: 20070401, end: 20070807
  6. DURAGESIC-100 [Suspect]
     Route: 062
  7. LEXOMIL [Suspect]
     Dosage: 6MG PER DAY
     Route: 048
  8. FORLAX [Suspect]
     Route: 048
  9. XALATAN [Concomitant]
     Route: 065
  10. COSOPT [Concomitant]
     Route: 065

REACTIONS (8)
  - CEREBELLAR SYNDROME [None]
  - CHEST PAIN [None]
  - CONDITION AGGRAVATED [None]
  - DYSSTASIA [None]
  - GAIT DISTURBANCE [None]
  - NEURALGIA [None]
  - ORTHOSTATIC HYPOTENSION [None]
  - VERTIGO [None]
